FAERS Safety Report 9201153 (Version 30)
Quarter: 2015Q3

REPORT INFORMATION
  Report Type: Report from Study
  Country: CA (occurrence: CA)
  Receive Date: 20130401
  Receipt Date: 20150831
  Transmission Date: 20151125
  Serious: Yes (Hospitalization, Other)
  Sender: FDA-Public Use
  Company Number: PHHY2013CA005160

PATIENT
  Age: 48 Year
  Sex: Female

DRUGS (13)
  1. SANDOSTATIN LAR DEPOT [Suspect]
     Active Substance: OCTREOTIDE ACETATE
     Dosage: 20 MG, EVERY 4 WEEKS
     Route: 030
  2. SANDOSTATIN LAR DEPOT [Suspect]
     Active Substance: OCTREOTIDE ACETATE
     Dosage: 40 MG, QMO
     Route: 030
  3. SANDOSTATIN LAR DEPOT [Suspect]
     Active Substance: OCTREOTIDE ACETATE
     Dosage: 40 MG, EVERY 4 WEEKS
     Route: 030
  4. SANDOSTATIN [Suspect]
     Active Substance: OCTREOTIDE ACETATE
     Indication: NEUROENDOCRINE CARCINOMA METASTATIC
     Dosage: 100 UG, BID
     Route: 058
     Dates: start: 20121123, end: 2012
  5. SANDOSTATIN [Suspect]
     Active Substance: OCTREOTIDE ACETATE
     Dosage: 100 UG/ML
     Route: 058
     Dates: start: 20130123
  6. SANDOSTATIN LAR DEPOT [Suspect]
     Active Substance: OCTREOTIDE ACETATE
     Dosage: 30 MG
     Route: 030
  7. SANDOSTATIN LAR DEPOT [Suspect]
     Active Substance: OCTREOTIDE ACETATE
     Dosage: 30 MG, EVERY 3 WEEKS
     Route: 030
     Dates: end: 20150727
  8. METOPROLOL [Concomitant]
     Active Substance: METOPROLOL
     Indication: PRODUCT USED FOR UNKNOWN INDICATION
     Dosage: 50 MG
     Route: 065
  9. ASA [Concomitant]
     Active Substance: ASPIRIN
     Indication: PRODUCT USED FOR UNKNOWN INDICATION
     Dosage: 81 MG
     Route: 065
  10. PLAVIX [Concomitant]
     Active Substance: CLOPIDOGREL BISULFATE
     Indication: PRODUCT USED FOR UNKNOWN INDICATION
     Dosage: 75 MG, QD
     Route: 048
  11. COVERSYL [Concomitant]
     Active Substance: PERINDOPRIL
     Indication: PRODUCT USED FOR UNKNOWN INDICATION
     Route: 065
  12. SANDOSTATIN LAR DEPOT [Suspect]
     Active Substance: OCTREOTIDE ACETATE
     Indication: NEUROENDOCRINE TUMOUR
     Dosage: 30 MG, EVERY 4 WEEKS
     Route: 030
     Dates: start: 20121205
  13. CLONIDINE HCL [Concomitant]
     Active Substance: CLONIDINE HYDROCHLORIDE
     Indication: PRODUCT USED FOR UNKNOWN INDICATION
     Dosage: 0.1 MG, QD
     Route: 065

REACTIONS (52)
  - Feeling hot [Unknown]
  - Back pain [Unknown]
  - Nasal congestion [Unknown]
  - Headache [Unknown]
  - Abdominal pain [Unknown]
  - Device occlusion [Not Recovered/Not Resolved]
  - Weight decreased [Unknown]
  - Malignant neoplasm progression [Unknown]
  - Vomiting [Unknown]
  - Flushing [Unknown]
  - Dyspepsia [Unknown]
  - Asthenia [Unknown]
  - Constipation [Unknown]
  - Incorrect dose administered [Unknown]
  - Needle issue [Unknown]
  - Myocardial infarction [Unknown]
  - Carbon monoxide poisoning [Unknown]
  - Kidney infection [Unknown]
  - Renal pain [Unknown]
  - Hyperhidrosis [Unknown]
  - Procedural pain [Unknown]
  - Nausea [Unknown]
  - Abdominal pain upper [Not Recovered/Not Resolved]
  - Fatigue [Unknown]
  - Pyrexia [Unknown]
  - Influenza like illness [Unknown]
  - Feeling abnormal [Unknown]
  - Malaise [Unknown]
  - Purulent discharge [Unknown]
  - Pulmonary oedema [Unknown]
  - Joint swelling [Unknown]
  - Decreased appetite [Unknown]
  - Urinary tract infection [Unknown]
  - Urine abnormality [Unknown]
  - Chills [Recovering/Resolving]
  - Blood pressure increased [Unknown]
  - Weight increased [Unknown]
  - Injection site swelling [Unknown]
  - Diarrhoea [Not Recovered/Not Resolved]
  - Rash [Unknown]
  - Drug ineffective [Unknown]
  - Urine odour abnormal [Unknown]
  - Drug intolerance [Unknown]
  - Fluid retention [Unknown]
  - Peripheral swelling [Unknown]
  - Heart injury [Unknown]
  - Renal failure [Unknown]
  - Renal impairment [Unknown]
  - Device related infection [Unknown]
  - Blood urine present [Unknown]
  - Blood creatinine increased [Unknown]
  - Underdose [Unknown]

NARRATIVE: CASE EVENT DATE: 20130103
